FAERS Safety Report 6030638-X (Version None)
Quarter: 2009Q1

REPORT INFORMATION
  Report Type: 
  Country: None (occurrence: None)
  Receive Date: 20090106
  Receipt Date: 20090106
  Transmission Date: 20090719
  Serious: Yes (Other)
  Sender: FDA-Public Use
  Company Number: None

PATIENT
  Age: 55 Year
  Sex: Female
  Weight: 83.0083 kg

DRUGS (2)
  1. CLEOCIN [Suspect]
     Indication: ABSCESS BACTERIAL
     Dosage: 1 300 MG CAPSULE 3 X A DAY PO
     Route: 048
     Dates: start: 20081124, end: 20081129
  2. BACTRIM [Suspect]
     Indication: ABSCESS BACTERIAL
     Dosage: 1 300 MG PILL 2 X A DAY PO
     Route: 048
     Dates: start: 20081124, end: 20081129

REACTIONS (7)
  - DIARRHOEA [None]
  - DIZZINESS [None]
  - FAECES DISCOLOURED [None]
  - FEAR [None]
  - HYPOPHAGIA [None]
  - ORAL CANDIDIASIS [None]
  - VOMITING [None]
